FAERS Safety Report 12243893 (Version 1)
Quarter: 2016Q2

REPORT INFORMATION
  Report Type: Spontaneous
  Country: MX (occurrence: MX)
  Receive Date: 20160406
  Receipt Date: 20160406
  Transmission Date: 20160815
  Serious: Yes (Death, Hospitalization)
  Sender: FDA-Public Use
  Company Number: MX-ABBVIE-16P-107-1598803-00

PATIENT
  Age: 67 Year
  Sex: Female

DRUGS (2)
  1. RIBAVIRIN. [Concomitant]
     Active Substance: RIBAVIRIN
     Indication: HEPATITIS C
     Dosage: 1 IN THE MORNING, 1 AT NIGHT
     Route: 048
     Dates: start: 201603
  2. VIEKIRA PAK [Suspect]
     Active Substance: DASABUVIR\OMBITASVIR\PARITAPREVIR\RITONAVIR
     Indication: HEPATITIS C
     Dosage: 3 IN THE MORNING, 1 AT NIGHT
     Route: 048
     Dates: start: 201603

REACTIONS (7)
  - Disorientation [Unknown]
  - Blood bilirubin increased [Unknown]
  - Hepatic failure [Fatal]
  - Ammonia increased [Unknown]
  - Sepsis [Unknown]
  - Urinary tract infection [Not Recovered/Not Resolved]
  - Confusional state [Unknown]

NARRATIVE: CASE EVENT DATE: 201603
